FAERS Safety Report 6304551-4 (Version None)
Quarter: 2009Q3

REPORT INFORMATION
  Report Type: 
  Country: None (occurrence: None)
  Receive Date: 20090806
  Receipt Date: 20090727
  Transmission Date: 20100115
  Serious: Yes (Hospitalization)
  Sender: FDA-Public Use
  Company Number: TRP_06298_2009

PATIENT
  Sex: Male
  Weight: 330 kg

DRUGS (25)
  1. INFERGEN [Suspect]
     Indication: HEPATITIS C
     Dosage: 15 UG QD SUBCUTANEOUS 15 UG QD SUBCUTANEOUS
     Route: 058
     Dates: start: 20090516, end: 20090601
  2. INFERGEN [Suspect]
     Indication: HEPATITIS C
     Dosage: 15 UG QD SUBCUTANEOUS 15 UG QD SUBCUTANEOUS
     Route: 058
     Dates: start: 20090519, end: 20090626
  3. RIBAVIRIN [Suspect]
     Indication: HEPATITIS C
     Dosage: 200 MG BID ORAL 200 MG BID ORAL
     Route: 048
     Dates: start: 20090516, end: 20090601
  4. RIBAVIRIN [Suspect]
     Indication: HEPATITIS C
     Dosage: 200 MG BID ORAL 200 MG BID ORAL
     Route: 048
     Dates: start: 20090619, end: 20090626
  5. ALLOPURINOL [Concomitant]
  6. ACTOS [Concomitant]
  7. NORVASC [Concomitant]
  8. LIPITOR [Concomitant]
  9. LEXAPRO [Concomitant]
  10. COLCHICINE [Concomitant]
  11. DIOVAN [Concomitant]
  12. LISINOPRIL [Concomitant]
  13. CARISOPRODOL [Concomitant]
  14. TRAMADOL [Concomitant]
  15. RESTORIL [Concomitant]
  16. NOVOLIN R [Concomitant]
  17. NOVOLIN N [Concomitant]
  18. FIORICET [Concomitant]
  19. HYDROCHLOROTHIAZIDE [Concomitant]
  20. CADUET [Concomitant]
  21. PROAMATINE [Concomitant]
  22. RIBOFLAVIN TAB [Concomitant]
  23. INSULIN [Concomitant]
  24. PRIMATENE /00003901/ [Concomitant]
  25. DOANS /06611201/ [Concomitant]

REACTIONS (24)
  - ABASIA [None]
  - ACTIVITIES OF DAILY LIVING IMPAIRED [None]
  - ANAEMIA [None]
  - ARTHRALGIA [None]
  - ASTHENIA [None]
  - BLOOD CREATININE INCREASED [None]
  - BLOOD ELECTROLYTES ABNORMAL [None]
  - CONSTIPATION [None]
  - DECREASED APPETITE [None]
  - DEEP VEIN THROMBOSIS [None]
  - DEHYDRATION [None]
  - DIZZINESS [None]
  - DRY MOUTH [None]
  - FATIGUE [None]
  - GASTROINTESTINAL SOUNDS ABNORMAL [None]
  - HYPERHIDROSIS [None]
  - INSOMNIA [None]
  - JAUNDICE [None]
  - LACRIMATION INCREASED [None]
  - MENISCUS LESION [None]
  - NEUTROPENIA [None]
  - OBESITY [None]
  - PANCREATITIS RELAPSING [None]
  - THROMBOCYTOPENIA [None]
